FAERS Safety Report 5393282-3 (Version None)
Quarter: 2007Q3

REPORT INFORMATION
  Report Type: 
  Country: None (occurrence: None)
  Receive Date: 20070723
  Receipt Date: 20070720
  Transmission Date: 20080115
  Serious: Yes (Death, Other)
  Sender: FDA-Public Use
  Company Number: PHBS2007JP12158

PATIENT
  Age: 86 Year
  Sex: Female

DRUGS (6)
  1. ALEVIATIN [Concomitant]
  2. MYSLEE [Concomitant]
  3. CANDESARTAN CILEXETIL [Concomitant]
  4. TRICHLORMETHIAZIDE [Concomitant]
  5. DEPAKENE [Concomitant]
     Indication: EPILEPSY
  6. TEGRETOL [Suspect]
     Indication: EPILEPSY
     Route: 048

REACTIONS (8)
  - DERMATITIS EXFOLIATIVE [None]
  - DIARRHOEA [None]
  - DISSEMINATED INTRAVASCULAR COAGULATION [None]
  - DRUG TOXICITY [None]
  - EPILEPSY [None]
  - ERYTHEMA [None]
  - SEPSIS [None]
  - STEVENS-JOHNSON SYNDROME [None]
